FAERS Safety Report 8658643 (Version 5)
Quarter: 2013Q1

REPORT INFORMATION
  Report Type: Spontaneous
  Country: US (occurrence: None)
  Receive Date: 20120625
  Receipt Date: 20130128
  Transmission Date: 20140127
  Serious: Yes (Hospitalization)
  Sender: FDA-Public Use
  Company Number: JPI-P-021993

PATIENT
  Age: 56 Year
  Sex: Male
  Weight: 117.94 kg

DRUGS (26)
  1. XYREM [Suspect]
     Indication: NARCOLEPSY
     Dosage: 6 GM (3 GM, 2 IN 1 D)
     Route: 048
     Dates: start: 20060421
  2. PIOGLITAZONE HYDROCHLORIDE [Concomitant]
  3. AMANTADINE [Concomitant]
  4. ANASTROZOLE [Concomitant]
  5. DUTASTERIDE [Concomitant]
  6. NEBIVOLOL [Concomitant]
  7. TADALAFIL [Concomitant]
  8. CLONAZEPAM [Concomitant]
  9. FOLIC ACID [Concomitant]
  10. CHONDROITIN SULFATE A\GLUCOSAMINE [Concomitant]
  11. FLAVOCOXID [Concomitant]
  12. OMEGA-3-ACID ETHYL ESTERS [Concomitant]
  13. PRAMIPEXOLE DIHYCHLORIDE [Concomitant]
  14. MULTI-VITAMIN [Concomitant]
  15. OXYCODONE APAP [Concomitant]
  16. QUINAPRIL [Concomitant]
  17. METOCLOPRAMIDE [Concomitant]
  18. EZETIMIBE AND SIMVASTATIN [Concomitant]
  19. COLESEVELAM HYDROCHLORIDE [Concomitant]
  20. LIRAGLUTIDE [Concomitant]
  21. FENOFIBRATE [Concomitant]
  22. METAXALONE [Concomitant]
  23. LIDOCAINE [Concomitant]
  24. OMEPRAZOLE [Concomitant]
  25. WARFARIN [Concomitant]
  26. PINDOLOL [Concomitant]

REACTIONS (11)
  - Pulmonary thrombosis [None]
  - Thrombosis [None]
  - International normalised ratio increased [None]
  - Weight increased [None]
  - Fall [None]
  - Foot fracture [None]
  - Blood potassium increased [None]
  - Blood creatinine increased [None]
  - Back pain [None]
  - Knee arthroplasty [None]
  - Alopecia [None]
